FAERS Safety Report 24671753 (Version 1)
Quarter: 2024Q4

REPORT INFORMATION
  Report Type: Report from Study
  Country: CO (occurrence: CO)
  Receive Date: 20241127
  Receipt Date: 20241127
  Transmission Date: 20250115
  Serious: Yes (Death, Hospitalization, Other)
  Sender: ABBVIE
  Company Number: CO-ABBVIE-6021727

PATIENT
  Age: 42 Year
  Sex: Female

DRUGS (1)
  1. HUMIRA [Suspect]
     Active Substance: ADALIMUMAB
     Indication: Rheumatoid arthritis
     Dosage: FORM STRENGTH: 40 MG
     Route: 058
     Dates: start: 20160329

REACTIONS (8)
  - Respiratory arrest [Fatal]
  - Aphasia [Unknown]
  - Leishmaniasis [Unknown]
  - Rash [Not Recovered/Not Resolved]
  - Discomfort [Unknown]
  - Hypophagia [Unknown]
  - Gait inability [Unknown]
  - Respiratory arrest [Not Recovered/Not Resolved]

NARRATIVE: CASE EVENT DATE: 20240101
